FAERS Safety Report 8771433 (Version 3)
Quarter: 2012Q4

REPORT INFORMATION
  Report Type: Report from Study
  Country: JP (occurrence: JP)
  Receive Date: 20120906
  Receipt Date: 20121002
  Transmission Date: 20130627
  Serious: Yes (Other)
  Sender: FDA-Public Use
  Company Number: JP-ASTELLAS-2012JP006778

PATIENT
  Age: 56 Year
  Sex: Female
  Weight: 54.8 kg

DRUGS (25)
  1. TACROLIMUS CAPSULES [Suspect]
     Indication: MYASTHENIA GRAVIS
     Dosage: 3 mg, Unknown/D
     Route: 048
     Dates: start: 20110527
  2. PREDONINE [Suspect]
     Indication: MYASTHENIA GRAVIS
     Dosage: 10 mg, Unknown/D
     Route: 048
     Dates: end: 20110602
  3. PREDONINE [Suspect]
     Dosage: 10 mg, Unknown/D
     Route: 048
     Dates: start: 20110606, end: 20110608
  4. PREDONINE [Suspect]
     Dosage: 10 mg, Unknown/D
     Route: 048
     Dates: start: 20110612, end: 20111128
  5. PREDONINE [Suspect]
     Dosage: 15 mg, Unknown/D
     Route: 048
     Dates: start: 20111129, end: 20111206
  6. PREDONINE [Suspect]
     Dosage: 20 mg, Unknown/D
     Route: 048
     Dates: start: 20111207, end: 20120523
  7. PREDONINE [Suspect]
     Dosage: 17.5 mg, Unknown/D
     Route: 048
     Dates: start: 20120524, end: 20120529
  8. MESTINON [Concomitant]
     Indication: MYASTHENIA GRAVIS
     Dosage: 60 mg, UID/QD
     Route: 048
     Dates: end: 20110524
  9. MESTINON [Concomitant]
     Dosage: 120 mg, Unknown/D
     Route: 048
     Dates: start: 20120525, end: 20120527
  10. SOLU MEDROL [Concomitant]
     Indication: MYASTHENIA GRAVIS
     Dosage: 1000 mg, Unknown/D
     Route: 065
     Dates: start: 20110603, end: 20110605
  11. SOLU MEDROL [Concomitant]
     Dosage: 1000 mg, Unknown/D
     Route: 065
     Dates: start: 20110609, end: 20110611
  12. VENOGLOBULIN-IH [Concomitant]
     Indication: MYASTHENIA GRAVIS
     Dosage: 20000 mg, Unknown/D
     Route: 065
     Dates: start: 20111128, end: 20111202
  13. VENOGLOBULIN-IH [Concomitant]
     Dosage: 2500 mg, Unknown/D
     Route: 065
     Dates: start: 20111128, end: 20111202
  14. GASTER [Concomitant]
     Indication: PROPHYLAXIS
     Dosage: 40 mg, Unknown/D
     Route: 048
  15. ALOSENN                            /02118001/ [Concomitant]
     Indication: CONSTIPATION
     Dosage: 0.5 g, Unknown/D
     Route: 048
     Dates: start: 20110518, end: 20110518
  16. AVELOX [Concomitant]
     Indication: ANTIBIOTIC PROPHYLAXIS
     Dosage: 400 mg, Unknown/D
     Route: 048
     Dates: start: 20110520, end: 20110522
  17. LOXONIN [Concomitant]
     Indication: POSTOPERATIVE ANALGESIA
     Dosage: 180 mg, Unknown/D
     Route: 048
     Dates: start: 20110520, end: 20110526
  18. MUCOSTA [Concomitant]
     Indication: POSTOPERATIVE ANALGESIA
     Dosage: 300 mg, Unknown/D
     Route: 048
     Dates: start: 20110520, end: 20110526
  19. METHYCOBAL [Concomitant]
     Indication: HYPOAESTHESIA
     Dosage: 1500 ug, Unknown/D
     Route: 048
     Dates: start: 20110603
  20. ASPARA-CA [Concomitant]
     Indication: PROPHYLAXIS
     Dosage: 1200 mg, Unknown/D
     Route: 048
     Dates: start: 20110609
  21. FOSAMAC [Concomitant]
     Indication: PROPHYLAXIS
     Dosage: 35 mg, Unknown/D
     Route: 048
     Dates: start: 20110609
  22. LENDORMIN [Concomitant]
     Indication: INSOMNIA
     Dosage: 0.25 mg, Unknown/D
     Route: 048
     Dates: start: 20110611, end: 20110611
  23. CRAVIT [Concomitant]
     Indication: CYSTITIS
     Dosage: 500 mg, Unknown/D
     Route: 048
     Dates: start: 20110623, end: 20110629
  24. TRAVATANZ [Concomitant]
     Indication: OCULAR HYPERTENSION
     Dosage: 1 drops, UID/QD
     Route: 047
     Dates: start: 20110719
  25. EBRANTIL                           /00631801/ [Concomitant]
     Indication: NEUROGENIC BLADDER
     Dosage: 30 mg, Unknown/D
     Route: 048
     Dates: start: 201107

REACTIONS (5)
  - Ocular hypertension [Unknown]
  - Neurogenic bladder [Recovering/Resolving]
  - Cystitis [Recovered/Resolved]
  - Nasopharyngitis [Recovered/Resolved]
  - Hypoaesthesia [Unknown]
